FAERS Safety Report 6728581-3 (Version None)
Quarter: 2010Q2

REPORT INFORMATION
  Report Type: 
  Country: None (occurrence: None)
  Receive Date: 20100517
  Receipt Date: 20100505
  Transmission Date: 20101027
  Serious: Yes (Hospitalization)
  Sender: FDA-Public Use
  Company Number: DE-PFIZER INC-2009183854

PATIENT
  Age: 20 Year
  Sex: Female
  Weight: 55 kg

DRUGS (6)
  1. GABAPENTIN [Suspect]
     Indication: PAIN
     Dosage: 300 MG, 4X/DAY
     Route: 048
     Dates: start: 20081205
  2. GABAPENTIN [Suspect]
     Dosage: 100 MG, 3X/DAY
     Route: 048
     Dates: start: 20081102
  3. GABAPENTIN [Suspect]
     Dosage: 300 MG, 3X/DAY
     Route: 048
     Dates: start: 20080101, end: 20081204
  4. CEFADROXIL [Concomitant]
     Indication: LYME DISEASE
     Dosage: 500 MG, 3X/DAY
     Route: 048
     Dates: start: 20081128, end: 20081204
  5. CEFADROXIL [Concomitant]
     Dosage: 500 MG, 2X/DAY
     Dates: start: 20081205
  6. PERENTEROL [Concomitant]
     Indication: DIARRHOEA
     Dosage: 6X50 MG/DAY
     Route: 048
     Dates: start: 20081116

REACTIONS (1)
  - NARCOLEPSY [None]
